FAERS Safety Report 8541223-X (Version None)
Quarter: 2012Q3

REPORT INFORMATION
  Report Type: 
  Country: None (occurrence: None)
  Receive Date: 20120726
  Receipt Date: 20120719
  Transmission Date: 20120928
  Serious: Yes (Other)
  Sender: FDA-Public Use
  Company Number: US-PFIZER INC-2004096028

PATIENT
  Sex: Male
  Weight: 93 kg

DRUGS (8)
  1. PHENOBARBITAL TAB [Concomitant]
     Route: 048
  2. FINASTERIDE [Concomitant]
     Route: 048
  3. ENALAPRIL MALEATE [Concomitant]
     Route: 048
  4. NAPROXEN [Concomitant]
     Route: 048
  5. ACETYLSALICYLIC ACID SRT [Concomitant]
     Route: 048
  6. DILANTIN [Suspect]
     Indication: CONVULSION
     Route: 048
  7. DOXAZOSIN MESYLATE [Concomitant]
     Route: 048
  8. DILANTIN [Suspect]
     Indication: EPILEPSY

REACTIONS (3)
  - ARTHRITIS [None]
  - INTERVERTEBRAL DISC COMPRESSION [None]
  - BACK PAIN [None]
